FAERS Safety Report 5326153-9 (Version None)
Quarter: 2007Q2

REPORT INFORMATION
  Report Type: 
  Country: None (occurrence: None)
  Receive Date: 20070516
  Receipt Date: 20070511
  Transmission Date: 20071010
  Serious: Yes (Death, Hospitalization)
  Sender: FDA-Public Use
  Company Number: GR-AVENTIS-200713721GDDC

PATIENT
  Age: 63 Year
  Sex: Female
  Weight: 63 kg

DRUGS (4)
  1. ARAVA [Suspect]
     Indication: RHEUMATOID ARTHRITIS
     Route: 048
     Dates: start: 20040708, end: 20061010
  2. ETANERCEPT [Concomitant]
     Indication: RHEUMATOID ARTHRITIS
     Dates: start: 20060710, end: 20061010
  3. MEDROL [Concomitant]
     Dosage: DOSE: UNK
     Dates: start: 19990410, end: 20061020
  4. SANDIMMUNE [Concomitant]
     Dosage: DOSE: UNK
     Dates: start: 20060215, end: 20061010

REACTIONS (2)
  - DYSPNOEA [None]
  - RESPIRATORY ARREST [None]
